FAERS Safety Report 18454978 (Version 2)
Quarter: 2020Q4

REPORT INFORMATION
  Report Type: Report from Study
  Country: US (occurrence: US)
  Receive Date: 20201102
  Receipt Date: 20201123
  Transmission Date: 20210114
  Serious: Yes (Death, Hospitalization, Other)
  Sender: FDA-Public Use
  Company Number: US-EISAI MEDICAL RESEARCH-EC-2020-082285

PATIENT
  Age: 65 Year
  Sex: Male

DRUGS (2)
  1. LENVIMA [Suspect]
     Active Substance: LENVATINIB
     Route: 048
     Dates: start: 20201011, end: 20201021
  2. LENVIMA [Suspect]
     Active Substance: LENVATINIB
     Indication: HEPATIC CANCER
     Route: 048
     Dates: start: 20201009, end: 20201010

REACTIONS (12)
  - Blood pressure increased [Unknown]
  - Hypersomnia [Recovering/Resolving]
  - Intra-abdominal fluid collection [Not Recovered/Not Resolved]
  - Pollakiuria [Recovering/Resolving]
  - Confusional state [Unknown]
  - Ammonia increased [Unknown]
  - Hepatic failure [Not Recovered/Not Resolved]
  - Death [Fatal]
  - Muscle spasms [Not Recovered/Not Resolved]
  - Diarrhoea [Not Recovered/Not Resolved]
  - Incoherent [Unknown]
  - Dysarthria [Recovering/Resolving]

NARRATIVE: CASE EVENT DATE: 202010
